FAERS Safety Report 6123414-0 (Version None)
Quarter: 2009Q1

REPORT INFORMATION
  Report Type: 
  Country: None (occurrence: None)
  Receive Date: 20090318
  Receipt Date: 20090310
  Transmission Date: 20090719
  Serious: Yes (Hospitalization)
  Sender: FDA-Public Use
  Company Number: CA-AMGEN-QUU337872

PATIENT
  Age: 53 Year
  Sex: Female

DRUGS (12)
  1. ENBREL [Suspect]
     Indication: DRUG USE FOR UNKNOWN INDICATION
     Route: 030
  2. ANCEF [Concomitant]
     Route: 042
  3. ASPIRIN 10GR TIMED DISINTEGRATION TAB [Concomitant]
     Route: 048
  4. FLAGYL [Concomitant]
     Route: 042
  5. FOLIC ACID [Concomitant]
  6. METHOTREXATE [Concomitant]
  7. MORPHINE [Concomitant]
     Route: 030
  8. NAPROXEN [Concomitant]
     Route: 048
  9. PREDNISONE TAB [Concomitant]
     Route: 048
  10. QUINAPRIL [Concomitant]
     Route: 048
  11. SERAX [Concomitant]
     Route: 048
  12. TYLENOL [Concomitant]
     Route: 048

REACTIONS (5)
  - ABSCESS [None]
  - CELLULITIS [None]
  - ERYTHEMA [None]
  - GANGRENE [None]
  - INFECTION [None]
